FAERS Safety Report 22185961 (Version 1)
Quarter: 2023Q2

REPORT INFORMATION
  Report Type: Spontaneous
  Country: US (occurrence: None)
  Receive Date: 20230406
  Receipt Date: 20230406
  Transmission Date: 20230722
  Serious: Yes (Other)
  Sender: FDA-Public Use
  Company Number: None

PATIENT
  Age: 81 Year
  Sex: Male
  Weight: 103.5 kg

DRUGS (1)
  1. VENCLEXTA [Suspect]
     Active Substance: VENETOCLAX
     Dosage: FREQUENCY : DAILY;?
     Route: 048
     Dates: start: 20230221, end: 20230403

REACTIONS (3)
  - Thrombocytopenia [None]
  - Disease recurrence [None]
  - Full blood count decreased [None]

NARRATIVE: CASE EVENT DATE: 20230329
